FAERS Safety Report 4480830-0 (Version None)
Quarter: 2004Q4

REPORT INFORMATION
  Report Type: 
  Country: None (occurrence: None)
  Receive Date: 20041019
  Receipt Date: 20041012
  Transmission Date: 20050328
  Serious: Yes (Hospitalization)
  Sender: FDA-Public Use
  Company Number: 2004235486US

PATIENT
  Age: 58 Year
  Sex: Male

DRUGS (5)
  1. CELEBREX [Suspect]
     Indication: SQUAMOUS CELL CARCINOMA
     Dosage: 400 MG, BID
     Dates: start: 20040823, end: 20040923
  2. CELEBREX [Suspect]
     Indication: SQUAMOUS CELL CARCINOMA
     Dosage: 400 MG, BID
     Dates: start: 20040926
  3. PACLITAXEL [Suspect]
     Indication: SQUAMOUS CELL CARCINOMA
     Dosage: WEEKLY
     Dates: start: 20040914, end: 20040921
  4. CARBOPLATIN [Suspect]
     Dosage: 30 MG/M2, WEKLY
     Dates: start: 20040907, end: 20040921
  5. CLINICAL TRIAL PROCEDURE (CLINICAL TRIAL PROCEDURE) [Suspect]
     Indication: SQUAMOUS CELL CARCINOMA
     Dosage: ORAL; 400 MG, BID, ORAL
     Route: 048
     Dates: start: 20040926

REACTIONS (2)
  - ILEUS [None]
  - MEDICAL DEVICE COMPLICATION [None]
